FAERS Safety Report 4354217-5 (Version None)
Quarter: 2004Q2

REPORT INFORMATION
  Report Type: 
  Country: None (occurrence: None)
  Receive Date: 20040506
  Receipt Date: 20040429
  Transmission Date: 20050107
  Serious: Yes (Other)
  Sender: FDA-Public Use
  Company Number: US-GLAXOSMITHKLINE-A0509195A

PATIENT

DRUGS (4)
  1. COMBIVIR [Suspect]
     Indication: HIV INFECTION
     Route: 048
     Dates: start: 20020101, end: 20040101
  2. OXANDRIN [Suspect]
     Indication: WEIGHT CONTROL
     Dosage: 5MG TWICE PER DAY
     Route: 065
     Dates: start: 20020726, end: 20020823
  3. ANDROGEL [Concomitant]
  4. DEPO-TESTOSTERONE [Concomitant]

REACTIONS (2)
  - CARDIOMYOPATHY [None]
  - PALPITATIONS [None]
